FAERS Safety Report 8061367-9 (Version None)
Quarter: 2012Q1

REPORT INFORMATION
  Report Type: 
  Country: None (occurrence: None)
  Receive Date: 20120120
  Receipt Date: 20120117
  Transmission Date: 20120608
  Serious: Yes (Life-Threatening, Hospitalization)
  Sender: FDA-Public Use
  Company Number: US-ASTRAZENECA-2010SE41533

PATIENT
  Age: 65 Year
  Sex: Female
  Weight: 124.7 kg

DRUGS (18)
  1. DOXYCYCLINE [Concomitant]
  2. SYMBICORT [Suspect]
     Indication: CHRONIC OBSTRUCTIVE PULMONARY DISEASE
     Dosage: 160/4.5 TWO PUFFS TWICE A DAY
     Route: 055
     Dates: start: 20080101
  3. LASIX [Concomitant]
  4. ALBUTEROL [Concomitant]
     Dosage: PRN
  5. SPIRIVA [Concomitant]
     Indication: CHRONIC OBSTRUCTIVE PULMONARY DISEASE
     Route: 055
  6. ALBUTEROL [Concomitant]
     Indication: DYSPNOEA
     Dosage: Q 4 HOURS PRN
  7. ASPIRIN [Concomitant]
  8. SYMBICORT [Suspect]
     Indication: ASTHMA
     Dosage: 160/4.5 TWO PUFFS TWICE A DAY
     Route: 055
     Dates: start: 20080101
  9. ENALAPRIL MALEATE [Concomitant]
  10. VERAPAMIL [Concomitant]
  11. GENERIC CELEXA [Concomitant]
  12. GLUCOPHAGE [Concomitant]
  13. KLOR-CON [Concomitant]
  14. SYMBICORT [Suspect]
     Dosage: 160/4.5, ONE PUFF DAILY
     Route: 055
  15. POTASSIUM CHLORIDE [Concomitant]
  16. SYMBICORT [Suspect]
     Dosage: 160/4.5, ONE PUFF DAILY
     Route: 055
  17. GENERIC CELEXA [Concomitant]
  18. ATROVENT [Concomitant]
     Indication: DYSPNOEA
     Dosage: Q 4 HOURS PRN

REACTIONS (9)
  - RESPIRATORY FAILURE [None]
  - DYSPNOEA [None]
  - ANXIETY [None]
  - CHRONIC OBSTRUCTIVE PULMONARY DISEASE [None]
  - DIABETES MELLITUS [None]
  - MALAISE [None]
  - DRUG DOSE OMISSION [None]
  - CARDIAC FAILURE CONGESTIVE [None]
  - LOBAR PNEUMONIA [None]
